FAERS Safety Report 9767168 (Version 2)
Quarter: 2014Q4

REPORT INFORMATION
  Report Type: Spontaneous
  Country: US (occurrence: US)
  Receive Date: 20131217
  Receipt Date: 20141217
  Transmission Date: 20150529
  Serious: No
  Sender: FDA-Public Use
  Company Number: US-GLAXOSMITHKLINE-A1042027A

PATIENT
  Age: 58 Year
  Sex: Male

DRUGS (2)
  1. VOTRIENT [Suspect]
     Active Substance: PAZOPANIB HYDROCHLORIDE
     Indication: MALIGNANT URINARY TRACT NEOPLASM
     Dosage: 200 MG
     Route: 065
  2. VOTRIENT [Suspect]
     Active Substance: PAZOPANIB HYDROCHLORIDE

REACTIONS (7)
  - Dyspepsia [Unknown]
  - Decreased appetite [Unknown]
  - Abdominal pain upper [Unknown]
  - Weight decreased [Unknown]
  - Diarrhoea [Unknown]
  - Blood glucose decreased [Unknown]
  - Asthenia [Unknown]

NARRATIVE: CASE EVENT DATE: 201308
